FAERS Safety Report 8538805-8 (Version None)
Quarter: 2012Q3

REPORT INFORMATION
  Report Type: 
  Country: None (occurrence: None)
  Receive Date: 20120726
  Receipt Date: 20120716
  Transmission Date: 20120928
  Serious: Yes (Hospitalization)
  Sender: FDA-Public Use
  Company Number: SE-CELGENEUS-150-21660-12070402

PATIENT
  Age: 38 Year
  Sex: Female

DRUGS (4)
  1. FRAGMIN [Concomitant]
     Route: 065
  2. ABRAXANE [Suspect]
     Dosage: 280 MILLIGRAM
     Route: 065
     Dates: start: 20120314
  3. CARBOPLATIN [Suspect]
     Route: 041
     Dates: start: 20120314
  4. ACETAMINOPHEN [Concomitant]
     Route: 065

REACTIONS (1)
  - PALPITATIONS [None]
